FAERS Safety Report 11617387 (Version 1)
Quarter: 2015Q4

REPORT INFORMATION
  Report Type: Spontaneous
  Country: US (occurrence: US)
  Receive Date: 20151009
  Receipt Date: 20151009
  Transmission Date: 20160304
  Serious: Yes (Life-Threatening, Other)
  Sender: FDA-Public Use
  Company Number: US-BRISTOL-MYERS SQUIBB COMPANY-BMS-2015-066719

PATIENT
  Age: 80 Year
  Sex: Female

DRUGS (1)
  1. DASATINIB [Suspect]
     Active Substance: DASATINIB
     Indication: ACUTE LYMPHOCYTIC LEUKAEMIA
     Route: 065

REACTIONS (5)
  - Acute kidney injury [Unknown]
  - Pulmonary hypertension [Unknown]
  - Pulmonary oedema [Unknown]
  - Respiratory failure [Unknown]
  - Haemolytic anaemia [Unknown]
